FAERS Safety Report 6198681-8 (Version None)
Quarter: 2009Q2

REPORT INFORMATION
  Report Type: 
  Country: None (occurrence: None)
  Receive Date: 20090518
  Receipt Date: 20090518
  Transmission Date: 20091009
  Serious: No
  Sender: FDA-Public Use
  Company Number: None

PATIENT
  Age: 9 Year
  Sex: Female
  Weight: 34.0198 kg

DRUGS (1)
  1. CEFUROXIME AXETIL [Suspect]
     Indication: LYME DISEASE
     Dosage: 1TABLET/TWICE DAILY 047
     Dates: start: 20090428

REACTIONS (1)
  - ABDOMINAL PAIN [None]
